FAERS Safety Report 20176966 (Version 1)
Quarter: 2021Q4

REPORT INFORMATION
  Report Type: Spontaneous
  Country: IT (occurrence: IT)
  Receive Date: 20211213
  Receipt Date: 20211213
  Transmission Date: 20220304
  Serious: Yes (Death)
  Sender: FDA-Public Use
  Company Number: IT-NOVARTISPH-NVSC2021IT284608

PATIENT
  Age: 91 Year
  Sex: Female

DRUGS (1)
  1. LEVETIRACETAM [Suspect]
     Active Substance: LEVETIRACETAM
     Indication: Epilepsy
     Dosage: 2000 MG, QD (1000 MG, BID)
     Route: 065
     Dates: start: 2017, end: 20211101

REACTIONS (2)
  - Death [Fatal]
  - Feeding disorder [Unknown]

NARRATIVE: CASE EVENT DATE: 20211107
